FAERS Safety Report 22287082 (Version 7)
Quarter: 2023Q4

REPORT INFORMATION
  Report Type: Spontaneous
  Country: US (occurrence: US)
  Receive Date: 20230505
  Receipt Date: 20231115
  Transmission Date: 20240109
  Serious: No
  Sender: FDA-Public Use
  Company Number: US-PFIZER INC-PV202300078838

PATIENT
  Age: 15 Year
  Sex: Male
  Weight: 70.748 kg

DRUGS (6)
  1. GENOTROPIN [Suspect]
     Active Substance: SOMATROPIN
     Indication: Blood growth hormone abnormal
     Dosage: 2.8 MG, DAILY (BEFORE BED 7 - 8 PM)
     Dates: start: 20230222
  2. GENOTROPIN [Suspect]
     Active Substance: SOMATROPIN
     Dosage: 2.8 MG, DAILY (BEFORE BED 7 - 8 PM)
     Dates: start: 20230328
  3. GENOTROPIN [Suspect]
     Active Substance: SOMATROPIN
     Dosage: 2.8 MG, DAILY (BEFORE BED 7 - 8 PM)
     Dates: start: 20230426
  4. GENOTROPIN [Suspect]
     Active Substance: SOMATROPIN
     Dosage: 2.8 MG, DAILY (BEFORE BED 7 - 8 PM)
     Dates: start: 20230516
  5. GENOTROPIN [Suspect]
     Active Substance: SOMATROPIN
     Dosage: 2.8 MG, DAILY (BEFORE BED 7 - 8 PM)
     Dates: start: 20230602
  6. GENOTROPIN [Suspect]
     Active Substance: SOMATROPIN
     Dosage: 2.8 MG, DAILY (BEFORE BED 7 - 8 PM)
     Dates: start: 20230626

REACTIONS (3)
  - Drug dose omission by device [Recovered/Resolved]
  - Device breakage [Recovered/Resolved]
  - Device use error [Recovered/Resolved]

NARRATIVE: CASE EVENT DATE: 20230401
